FAERS Safety Report 10732776 (Version 1)
Quarter: 2015Q1

REPORT INFORMATION
  Report Type: Spontaneous
  Country: GB (occurrence: None)
  Receive Date: 20150120
  Receipt Date: 20150120
  Transmission Date: 20150721
  Serious: Yes (Life-Threatening, Hospitalization, Disabling)
  Sender: FDA-Public Use
  Company Number: GB-H14001-15-00034

PATIENT
  Age: 94 Year
  Sex: Female

DRUGS (7)
  1. CO-AMOXICLAV [Suspect]
     Active Substance: AMOXICILLIN\CLAVULANIC ACID
     Indication: LOWER RESPIRATORY TRACT INFECTION
     Route: 048
  2. WARFARIN (WARFARIN) [Suspect]
     Active Substance: WARFARIN
     Indication: ATRIAL FIBRILLATION
  3. ALLOPURINOL. [Concomitant]
     Active Substance: ALLOPURINOL
  4. FERROUS SULFATE [Concomitant]
     Active Substance: FERROUS SULFATE\FERROUS SULFATE, DRIED
  5. FUROSEMIDE. [Concomitant]
     Active Substance: FUROSEMIDE
  6. CO-AMOXICLAV [Suspect]
     Active Substance: AMOXICILLIN\CLAVULANIC ACID
     Indication: CELLULITIS
     Route: 048
  7. ATENOLOL. [Concomitant]
     Active Substance: ATENOLOL

REACTIONS (5)
  - International normalised ratio increased [None]
  - Drug interaction [None]
  - Haemorrhage [None]
  - Lower respiratory tract infection [None]
  - Cellulitis [None]
